FAERS Safety Report 9232663 (Version 1)
Quarter: 2013Q2

REPORT INFORMATION
  Report Type: Spontaneous
  Country: US (occurrence: None)
  Receive Date: 20130415
  Receipt Date: 20130415
  Transmission Date: 20140414
  Serious: Yes (Hospitalization, Disabling, Other)
  Sender: FDA-Public Use
  Company Number: None

PATIENT
  Age: 54 Year
  Sex: Male
  Weight: 111.13 kg

DRUGS (1)
  1. ZYPREXA [Suspect]
     Indication: BIPOLAR DISORDER
     Dates: start: 20010613

REACTIONS (5)
  - Diabetes mellitus [None]
  - Neuropathy peripheral [None]
  - Toe amputation [None]
  - Weight increased [None]
  - Restless legs syndrome [None]
